FAERS Safety Report 9292826 (Version 1)
Quarter: 2013Q2

REPORT INFORMATION
  Report Type: Spontaneous
  Country: ES (occurrence: ES)
  Receive Date: 20130516
  Receipt Date: 20130516
  Transmission Date: 20140414
  Serious: Yes (Hospitalization)
  Sender: FDA-Public Use
  Company Number: ES-ALLERGAN-1306980US

PATIENT
  Age: 59 Year
  Sex: Female

DRUGS (1)
  1. BOTOX [Suspect]
     Indication: MIGRAINE
     Dosage: 155 UNITS, SINGLE
     Route: 058
     Dates: start: 20130205, end: 20130205

REACTIONS (4)
  - Dystonia [Recovered/Resolved]
  - Muscular weakness [Recovered/Resolved]
  - Dysphagia [Not Recovered/Not Resolved]
  - Eyelid ptosis [Recovered/Resolved]
